FAERS Safety Report 4974974-4 (Version None)
Quarter: 2006Q2

REPORT INFORMATION
  Report Type: 
  Country: None (occurrence: None)
  Receive Date: 20060414
  Receipt Date: 20060414
  Transmission Date: 20061013
  Serious: Yes (Life-Threatening, Hospitalization)
  Sender: FDA-Public Use
  Company Number: None

PATIENT
  Sex: Male

DRUGS (1)
  1. UNASYN [Suspect]
     Indication: CELLULITIS
     Dosage: 3 GRAMS Q 8 HOURS IV [1 DOSE]
     Route: 042
     Dates: start: 20060221, end: 20060221

REACTIONS (4)
  - CARDIAC ARREST [None]
  - MEMORY IMPAIRMENT [None]
  - PARAESTHESIA ORAL [None]
  - RESPIRATORY ARREST [None]
